FAERS Safety Report 5415214-1 (Version None)
Quarter: 2007Q3

REPORT INFORMATION
  Report Type: 
  Country: None (occurrence: None)
  Receive Date: 20070815
  Receipt Date: 20070803
  Transmission Date: 20080115
  Serious: Yes (Other)
  Sender: FDA-Public Use
  Company Number: DE-AMGEN-UK237956

PATIENT
  Sex: Female
  Weight: 73 kg

DRUGS (2)
  1. NEUPOGEN [Suspect]
     Indication: BLOOD STEM CELL HARVEST
     Route: 058
     Dates: start: 20020301, end: 20020305
  2. PARACETAMOL [Concomitant]

REACTIONS (1)
  - FIBROMYALGIA [None]
